FAERS Safety Report 7017068-9 (Version None)
Quarter: 2010Q3

REPORT INFORMATION
  Report Type: 
  Country: None (occurrence: None)
  Receive Date: 20100927
  Receipt Date: 20100920
  Transmission Date: 20110219
  Serious: No
  Sender: FDA-Public Use
  Company Number: US-PFIZER INC-2010119862

PATIENT
  Sex: Male
  Weight: 70.3 kg

DRUGS (2)
  1. VIAGRA [Suspect]
     Indication: ERECTILE DYSFUNCTION
     Dosage: 50 MG, AS NEEDED
     Route: 048
     Dates: start: 20100801, end: 20100901
  2. TAMSULOSIN [Concomitant]
     Indication: PROSTATOMEGALY
     Dosage: UNK

REACTIONS (1)
  - GROIN PAIN [None]
